FAERS Safety Report 9475988 (Version 5)
Quarter: 2013Q4

REPORT INFORMATION
  Report Type: Spontaneous
  Country: US (occurrence: US)
  Receive Date: 20130826
  Receipt Date: 20131114
  Transmission Date: 20140711
  Serious: Yes (Hospitalization, Other)
  Sender: FDA-Public Use
  Company Number: US-ASTELLAS-2013US008736

PATIENT
  Age: 49 Year
  Sex: Female
  Weight: 104 kg

DRUGS (16)
  1. VESICARE [Suspect]
     Indication: HYPERTONIC BLADDER
     Dosage: 10 MG, UID/QD
     Route: 048
     Dates: start: 2012
  2. FENTANYL [Concomitant]
     Indication: PAIN
     Dosage: 100 UG, UNKNOWN/D
     Route: 062
  3. REGLAN                             /00041901/ [Concomitant]
     Indication: GASTROOESOPHAGEAL REFLUX DISEASE
     Dosage: 10 MG, QID
     Route: 048
  4. GABAPENTIN [Concomitant]
     Indication: RHEUMATOID ARTHRITIS
     Dosage: 300 MG, QID
     Route: 048
  5. LISINOPRIL [Concomitant]
     Indication: BLOOD PRESSURE
     Dosage: 10 MG, UID/QD
     Route: 048
  6. CYMBALTA [Concomitant]
     Indication: RHEUMATOID ARTHRITIS
     Dosage: 60 MG, UID/QD
     Route: 048
  7. PREMARIN [Concomitant]
     Indication: HORMONE REPLACEMENT THERAPY
     Dosage: 0.9 MG, UID/QD
     Route: 048
  8. AMBIEN [Concomitant]
     Indication: SLEEP DISORDER
     Dosage: 10 MG, UID/QD
     Route: 048
  9. NASONEX [Concomitant]
     Indication: HYPERSENSITIVITY
     Dosage: 50 UG, UNKNOWN/D
     Route: 045
  10. DEXILANT [Concomitant]
     Indication: DYSPEPSIA
     Dosage: 60 MG, UID/QD
     Route: 048
  11. IMURAN                             /00001501/ [Concomitant]
     Indication: RHEUMATOID ARTHRITIS
     Dosage: 100 MG, UID/QD
     Route: 048
  12. METHOTREXATE [Concomitant]
     Indication: RHEUMATOID ARTHRITIS
     Dosage: 1 DF, WEEKLY
     Route: 042
  13. VICODIN [Concomitant]
     Indication: PAIN
     Dosage: 7.5/750 MG SIX TIMES DAILY
     Route: 048
  14. SKELAXIN                           /00611501/ [Concomitant]
     Indication: MYALGIA
     Dosage: 800 MG, TID
     Route: 048
  15. LOTRONEX                           /01482801/ [Concomitant]
     Indication: IRRITABLE BOWEL SYNDROME
     Dosage: 1 MG, BID
     Route: 048
  16. LEUCOVORIN CA [Concomitant]
     Indication: ADVERSE DRUG REACTION
     Dosage: 5 MG, WEEKLY
     Route: 048

REACTIONS (7)
  - Viral infection [Recovered/Resolved]
  - Pneumonia [Recovered/Resolved]
  - Urinary tract infection bacterial [Recovering/Resolving]
  - Vomiting [Unknown]
  - Nasopharyngitis [Not Recovered/Not Resolved]
  - Rash [Unknown]
  - Pruritus [Unknown]
